FAERS Safety Report 20903584 (Version 7)
Quarter: 2023Q1

REPORT INFORMATION
  Report Type: Spontaneous
  Country: PL (occurrence: PL)
  Receive Date: 20220602
  Receipt Date: 20230222
  Transmission Date: 20230417
  Serious: Yes (Hospitalization, Other)
  Sender: FDA-Public Use
  Company Number: PL-009507513-2205POL008597

PATIENT
  Age: 60 Year
  Sex: Male

DRUGS (6)
  1. PEMBROLIZUMAB [Suspect]
     Active Substance: PEMBROLIZUMAB
     Indication: Squamous cell carcinoma of lung
     Dosage: UNK
     Dates: start: 2021, end: 20210312
  2. PEMBROLIZUMAB [Suspect]
     Active Substance: PEMBROLIZUMAB
     Dosage: THE 4TH COURSE OF TREATMENT
     Dates: start: 20210716
  3. PACLITAXEL [Suspect]
     Active Substance: PACLITAXEL
     Indication: Squamous cell carcinoma of lung
     Dosage: UNK
     Dates: start: 2021, end: 20210312
  4. PACLITAXEL [Suspect]
     Active Substance: PACLITAXEL
     Dosage: THE LAST COURSE WITH CHEMOTHERAPY
     Dates: start: 20210716, end: 20210716
  5. CARBOPLATIN [Suspect]
     Active Substance: CARBOPLATIN
     Indication: Squamous cell carcinoma of lung
     Dosage: UNK
     Dates: start: 2021, end: 20210312
  6. CARBOPLATIN [Suspect]
     Active Substance: CARBOPLATIN
     Dosage: THE LAST COURSE WITH CHEMOTHERAPY
     Dates: start: 20210716, end: 20210716

REACTIONS (16)
  - Speech disorder [Recovered/Resolved]
  - Facial asymmetry [Recovered/Resolved]
  - Muscular weakness [Recovered/Resolved]
  - Ischaemic stroke [Recovered/Resolved]
  - General physical health deterioration [Recovering/Resolving]
  - Hypophagia [Recovering/Resolving]
  - COVID-19 pneumonia [Recovering/Resolving]
  - Neutropenia [Recovering/Resolving]
  - Thrombocytopenia [Recovering/Resolving]
  - Asthenia [Recovering/Resolving]
  - Monoparesis [Recovering/Resolving]
  - Psychomotor hyperactivity [Recovering/Resolving]
  - Normocytic anaemia [Recovering/Resolving]
  - Atelectasis [Unknown]
  - Dehydration [Recovering/Resolving]
  - Lymphopenia [Recovering/Resolving]

NARRATIVE: CASE EVENT DATE: 20210101
